FAERS Safety Report 5035394-X (Version None)
Quarter: 2006Q2

REPORT INFORMATION
  Report Type: 
  Country: None (occurrence: None)
  Receive Date: 20060525
  Receipt Date: 20060201
  Transmission Date: 20061013
  Serious: Yes (Hospitalization)
  Sender: FDA-Public Use
  Company Number: 2006US002848

PATIENT
  Age: 77 Year
  Sex: Male

DRUGS (17)
  1. ALOXI [Suspect]
     Indication: PROPHYLAXIS OF NAUSEA AND VOMITING
     Dosage: 0.25 MG, SINGLE, INTRAVENOUS
     Route: 042
     Dates: start: 20050919
  2. S-1               (TEGAFUR, GIMERACIL, OTERACIL POTASSIUM) [Suspect]
     Indication: NON-SMALL CELL LUNG CANCER
     Dosage: SEE IMAGE
     Route: 048
     Dates: start: 20050919, end: 20050919
  3. S-1               (TEGAFUR, GIMERACIL, OTERACIL POTASSIUM) [Suspect]
     Indication: NON-SMALL CELL LUNG CANCER
     Dosage: SEE IMAGE
     Route: 048
     Dates: start: 20050918
  4. CISPLATIN [Suspect]
     Indication: NON-SMALL CELL LUNG CANCER
     Dosage: SEE IMAGE
     Route: 041
     Dates: start: 20050919, end: 20050919
  5. CISPLATIN [Suspect]
     Indication: NON-SMALL CELL LUNG CANCER
     Dosage: SEE IMAGE
     Route: 041
     Dates: start: 20050718
  6. DECADRON [Suspect]
     Indication: PROPHYLAXIS OF NAUSEA AND VOMITING
     Dosage: 10 MG, SINGLE, INTRAVENOUS
     Route: 042
     Dates: start: 20050919, end: 20050919
  7. HETASTARCH IN SODIUM CHLORIDE [Suspect]
     Indication: PLASMA EXPANDER TRANSFUSION
     Dosage: 500 ML, SINGLE
     Dates: start: 20050919, end: 20050919
  8. ADVAIR        (SALMETEROL XINAFOATE, FLUTICASONE PROPIONATE) [Suspect]
     Indication: CHRONIC OBSTRUCTIVE PULMONARY DISEASE
     Dates: start: 20000101
  9. COMBIVENT [Suspect]
     Indication: CHRONIC OBSTRUCTIVE PULMONARY DISEASE
     Dates: start: 20000101
  10. NITROSTAT [Concomitant]
  11. PLETAL (CILOSTAZOL) [Concomitant]
  12. ENALAPRIL MALEATE [Concomitant]
  13. TOPROL-XL [Concomitant]
  14. COLACE (DOCUSATE SODIUM) [Concomitant]
  15. FLOMAX [Concomitant]
  16. ASPIRIN TAB [Concomitant]
  17. FOLIC ACID [Concomitant]

REACTIONS (1)
  - DIZZINESS [None]
